FAERS Safety Report 5558366-5 (Version None)
Quarter: 2007Q4

REPORT INFORMATION
  Report Type: 
  Country: None (occurrence: None)
  Receive Date: 20071214
  Receipt Date: 20071203
  Transmission Date: 20080405
  Serious: Yes (Other)
  Sender: FDA-Public Use
  Company Number: US-PFIZER INC-2007102150

PATIENT
  Sex: Male
  Weight: 28.636 kg

DRUGS (3)
  1. DILANTIN [Suspect]
     Indication: CONVULSION
     Dosage: DAILY DOSE:260MG
  2. TRILEPTAL [Concomitant]
  3. DEPAKOTE [Concomitant]

REACTIONS (1)
  - CONVULSION [None]
